FAERS Safety Report 14354519 (Version 3)
Quarter: 2018Q1

REPORT INFORMATION
  Report Type: Spontaneous
  Country: IT (occurrence: IT)
  Receive Date: 20180105
  Receipt Date: 20180305
  Transmission Date: 20180509
  Serious: Yes (Hospitalization, Other)
  Sender: FDA-Public Use
  Company Number: IT-009507513-1712ITA013135

PATIENT
  Age: 21 Year
  Sex: Female

DRUGS (2)
  1. REMERON [Suspect]
     Active Substance: MIRTAZAPINE
     Dosage: IN TOTAL
     Route: 048
     Dates: start: 20170617
  2. EN [Suspect]
     Active Substance: DELORAZEPAM
     Dosage: IN TOTAL
     Route: 048
     Dates: start: 20170617

REACTIONS (2)
  - Sopor [Recovered/Resolved]
  - Suicide attempt [Recovered/Resolved]

NARRATIVE: CASE EVENT DATE: 20170617
